FAERS Safety Report 7379925-3 (Version None)
Quarter: 2011Q1

REPORT INFORMATION
  Report Type: 
  Country: None (occurrence: None)
  Receive Date: 20110329
  Receipt Date: 20110314
  Transmission Date: 20110831
  Serious: Yes (Other)
  Sender: FDA-Public Use
  Company Number: PHFR2011GB01932

PATIENT
  Sex: Female

DRUGS (5)
  1. CLOZARIL [Suspect]
     Dosage: 75 MG MANE, 175 MG NOCTE
     Route: 048
  2. CLOZARIL [Suspect]
     Dosage: 75 MG MANE, 125 MG NOCTE
     Route: 048
  3. SIMVASTATIN [Concomitant]
     Dosage: UNK DF, UNK
  4. CLOZARIL [Suspect]
     Indication: BORDERLINE PERSONALITY DISORDER
     Dosage: UNK MG, UNK
     Route: 048
     Dates: start: 20110216
  5. VENLAFAXINE [Concomitant]
     Dosage: UNK DF, UNK

REACTIONS (4)
  - FATIGUE [None]
  - CYANOSIS [None]
  - ELECTROCARDIOGRAM QT PROLONGED [None]
  - LETHARGY [None]
